FAERS Safety Report 6388420-X (Version None)
Quarter: 2009Q4

REPORT INFORMATION
  Report Type: 
  Country: None (occurrence: None)
  Receive Date: 20091005
  Receipt Date: 20090925
  Transmission Date: 20100525
  Serious: Yes (Other)
  Sender: FDA-Public Use
  Company Number: A0803356A

PATIENT
  Age: 58 Year
  Sex: Female

DRUGS (3)
  1. NICODERM [Suspect]
     Indication: DRUG USE FOR UNKNOWN INDICATION
     Dosage: 21MG PER DAY
     Route: 062
     Dates: start: 20090730, end: 20090810
  2. ZYBAN [Suspect]
     Indication: SMOKING CESSATION THERAPY
     Dosage: 150MG TWICE PER DAY
     Route: 048
     Dates: start: 20090721, end: 20090812
  3. NICODERM [Suspect]
     Indication: SMOKING CESSATION THERAPY
     Dosage: 14MG PER DAY
     Route: 062
     Dates: end: 20090828

REACTIONS (3)
  - HYPERTENSION [None]
  - RASH [None]
  - TREMOR [None]
